FAERS Safety Report 18412796 (Version 1)
Quarter: 2020Q4

REPORT INFORMATION
  Report Type: Spontaneous
  Country: US (occurrence: US)
  Receive Date: 20201021
  Receipt Date: 20201021
  Transmission Date: 20210114
  Serious: No
  Sender: FDA-Public Use
  Company Number: US-BAUSCH-BL-2020-029188

PATIENT
  Sex: Male

DRUGS (2)
  1. ONEXTON [Suspect]
     Active Substance: BENZOYL PEROXIDE\CLINDAMYCIN PHOSPHATE
     Indication: PRODUCT USED FOR UNKNOWN INDICATION
     Dosage: APPLIED AT BEDTIME, ONEXTON WAS DISPENSED ON /DEC/2019 AND /JUN/2020
     Route: 061
  2. ONEXTON [Suspect]
     Active Substance: BENZOYL PEROXIDE\CLINDAMYCIN PHOSPHATE
     Dosage: ONEXTON WAS DISPENSED AGAIN TO THE PATIENT ON 24/SEP/2020 AND ON 01/OCT/2020, AT BEDTIME AS NEEDED
     Route: 061

REACTIONS (3)
  - Product physical consistency issue [Unknown]
  - Skin burning sensation [Unknown]
  - Product quality issue [Unknown]

NARRATIVE: CASE EVENT DATE: 2020
